FAERS Safety Report 10408468 (Version 11)
Quarter: 2022Q3

REPORT INFORMATION
  Report Type: Spontaneous
  Country: GB (occurrence: GB)
  Receive Date: 20140826
  Receipt Date: 20220927
  Transmission Date: 20221026
  Serious: Yes (Life-Threatening, Hospitalization, Disabling, Other)
  Sender: FDA-Public Use
  Company Number: None

PATIENT

DRUGS (25)
  1. ACETAMINOPHEN [Suspect]
     Active Substance: ACETAMINOPHEN
     Indication: Pelvic pain
     Dosage: 4 MILLIGRAM, FOUR TIMES/DAY
     Route: 048
  2. ACETAMINOPHEN [Suspect]
     Active Substance: ACETAMINOPHEN
     Indication: Product used for unknown indication
     Dosage: 4 MG, QID
     Route: 048
  3. ACETAMINOPHEN [Suspect]
     Active Substance: ACETAMINOPHEN
     Indication: Pelvic pain
     Dosage: UPTO FOUR DOSES PER DAY 1 TRIMESTER, 4 MILLIGRAM, FOUR TIMES/DAY16 MILLIGRAM, UP TO FOUR DOSES PER D
     Route: 048
  4. ACETAMINOPHEN [Suspect]
     Active Substance: ACETAMINOPHEN
     Dosage: 4, UP TO FOUR DOSES PER DAY
     Route: 065
  5. ACETAMINOPHEN [Suspect]
     Active Substance: ACETAMINOPHEN
     Dosage: 4 MILLIGRAM, ONCE A DAY
     Route: 048
  6. ACETAMINOPHEN [Suspect]
     Active Substance: ACETAMINOPHEN
     Dosage: UNK
     Route: 064
  7. ACETAMINOPHEN [Suspect]
     Active Substance: ACETAMINOPHEN
     Indication: Product used for unknown indication
     Dosage: 4 MILLIGRAM, FOUR TIMES/DAY
     Route: 048
  8. COCODAMOL [Suspect]
     Active Substance: ACETAMINOPHEN\CODEINE PHOSPHATE
     Indication: Pelvic pain
     Dosage: UNK, FOUR TIMES/DAY
     Route: 048
  9. COCODAMOL [Suspect]
     Active Substance: ACETAMINOPHEN\CODEINE PHOSPHATE
     Indication: Pelvic girdle pain
     Dosage: UNK
     Route: 064
  10. COCODAMOL [Suspect]
     Active Substance: ACETAMINOPHEN\CODEINE PHOSPHATE
     Indication: Product used for unknown indication
     Dosage: 4 MILLIGRAM, ONCE A DAY
     Route: 048
  11. COCODAMOL [Suspect]
     Active Substance: ACETAMINOPHEN\CODEINE PHOSPHATE
     Dosage: SECOND TRIMESTER
     Route: 048
  12. COCODAMOL [Suspect]
     Active Substance: ACETAMINOPHEN\CODEINE PHOSPHATE
     Dosage: 16 MILLIGRAM, ONCE A DAY
     Route: 048
  13. FLUOXETINE [Concomitant]
     Active Substance: FLUOXETINE HYDROCHLORIDE
     Indication: Product used for unknown indication
     Dosage: UNK
     Route: 064
  14. CEPHRADINE [Concomitant]
     Active Substance: CEPHRADINE
     Indication: Product used for unknown indication
     Dosage: UNK
     Route: 064
  15. CEPHRADINE [Concomitant]
     Active Substance: CEPHRADINE
     Dosage: UNK
     Route: 064
  16. METRONIDAZOLE [Concomitant]
     Active Substance: METRONIDAZOLE
     Indication: Pyelonephritis
     Dosage: UNK
     Route: 064
  17. METRONIDAZOLE [Concomitant]
     Active Substance: METRONIDAZOLE
     Dosage: UNK
     Route: 065
  18. ENOXAPARIN [Concomitant]
     Active Substance: ENOXAPARIN
     Indication: Product used for unknown indication
     Dosage: UNK
     Route: 064
  19. CODEINE PHOSPHATE [Suspect]
     Active Substance: CODEINE PHOSPHATE
     Indication: Pelvic pain
     Dosage: 4 MG, QD
     Route: 048
  20. CODEINE PHOSPHATE [Suspect]
     Active Substance: CODEINE PHOSPHATE
     Dosage: 16 MG QD
     Route: 048
  21. CODEINE PHOSPHATE [Suspect]
     Active Substance: CODEINE PHOSPHATE
     Dosage: UNKUNK, QID
     Route: 048
  22. CETIRIZINE HYDROCHLORIDE [Suspect]
     Active Substance: CETIRIZINE HYDROCHLORIDE
     Indication: Product used for unknown indication
     Dosage: 10 MG, QD
     Route: 048
     Dates: start: 20180528, end: 20180601
  23. PERFALGAN [Suspect]
     Active Substance: ACETAMINOPHEN
     Indication: Back disorder
     Dosage: UNK
     Route: 065
  24. PERFALGAN [Suspect]
     Active Substance: ACETAMINOPHEN
     Indication: Pelvic pain
     Dosage: UNK (UP TO FOUR TIMES A DAY)
     Route: 065
  25. MORPHINE HYDROCHLORIDE [Concomitant]
     Active Substance: MORPHINE HYDROCHLORIDE
     Indication: Product used for unknown indication
     Route: 065

REACTIONS (21)
  - Malaise [Recovered/Resolved]
  - Asthenia [Unknown]
  - Hepatic failure [Recovered/Resolved]
  - Fear [Unknown]
  - Accidental overdose [Recovered/Resolved]
  - Hepatotoxicity [Recovered/Resolved with Sequelae]
  - Feeling guilty [Unknown]
  - Depressed level of consciousness [Unknown]
  - Asthenopia [Unknown]
  - Consciousness fluctuating [Unknown]
  - Liver disorder [Recovered/Resolved]
  - Gait inability [Unknown]
  - Crying [Unknown]
  - Fear of death [Unknown]
  - Uterine hypertonus [Unknown]
  - Incorrect product administration duration [Unknown]
  - Developmental delay [Unknown]
  - Foetal monitoring abnormal [Unknown]
  - Premature labour [Unknown]
  - Mania [Recovering/Resolving]
  - Maternal exposure during pregnancy [Recovered/Resolved]

NARRATIVE: CASE EVENT DATE: 20180601
